FAERS Safety Report 20393937 (Version 4)
Quarter: 2023Q2

REPORT INFORMATION
  Report Type: Spontaneous
  Country: BE (occurrence: BE)
  Receive Date: 20220129
  Receipt Date: 20230616
  Transmission Date: 20230721
  Serious: Yes (Hospitalization, Other)
  Sender: FDA-Public Use
  Company Number: BE-002147023-NVSC2021BE114686

PATIENT
  Age: 74 Year
  Weight: 95 kg

DRUGS (14)
  1. FLUCLOXACILLIN [Interacting]
     Active Substance: FLUCLOXACILLIN
     Indication: Staphylococcal sepsis
     Dosage: 2 GRAM, EVERY FOUR HOUR
     Route: 042
  2. PIPERACILLIN AND TAZOBACTAM [Suspect]
     Active Substance: PIPERACILLIN SODIUM\TAZOBACTAM SODIUM
     Indication: Antibiotic therapy
     Dosage: 4 GRAM, FOUR TIMES/DAY
     Route: 065
  3. VORICONAZOLE [Interacting]
     Active Substance: VORICONAZOLE
     Indication: Aspergillus infection
     Dosage: 600 MILLIGRAM, TWO TIMES A DAY (AS LOADING DOSE, FIRST DAY)
     Route: 065
  4. VORICONAZOLE [Interacting]
     Active Substance: VORICONAZOLE
     Dosage: 400 MILLIGRAM, TWO TIMES A DAY (MAINTENANCE DOSE)
     Route: 065
  5. AMPHOTERICIN B [Suspect]
     Active Substance: AMPHOTERICIN B
     Indication: Aspergillus infection
     Dosage: 300 MILLIGRAM, ONCE A DAY
     Route: 065
  6. ISAVUCONAZOLE [Interacting]
     Active Substance: ISAVUCONAZOLE
     Indication: Aspergillus infection
     Dosage: 300 MILLIGRAM (DAY 8) (INCREASED TO 300 MG)
     Route: 065
  7. ISAVUCONAZOLE [Interacting]
     Active Substance: ISAVUCONAZOLE
     Dosage: 500 MILLIGRAM (DAY 14)
     Route: 065
  8. ISAVUCONAZOLE [Interacting]
     Active Substance: ISAVUCONAZOLE
     Dosage: 200 MILLIGRAM, ONCE A DAY (FROM DAY 3) (MAINTENANCE DOSE)
     Route: 042
  9. ISAVUCONAZOLE [Interacting]
     Active Substance: ISAVUCONAZOLE
     Dosage: 200 MILLIGRAM, 3 TIMES A DAY (LOADING DOSE)
     Route: 042
  10. RIFAMPIN [Interacting]
     Active Substance: RIFAMPIN
     Indication: Staphylococcal sepsis
     Dosage: 300 MILLIGRAM, 3 TIMES A DAY
     Route: 042
  11. RIFAMPIN [Interacting]
     Active Substance: RIFAMPIN
     Dosage: 300 MILLIGRAM, 3 TIMES A DAY
     Route: 042
  12. CASPOFUNGIN [Suspect]
     Active Substance: CASPOFUNGIN
     Indication: Aspergillus infection
     Dosage: 70 MILLIGRAM, ONCE A DAY
     Route: 065
  13. RIFABUTIN [Suspect]
     Active Substance: RIFABUTIN
     Indication: Staphylococcal sepsis
     Dosage: UNK
     Route: 048
  14. GENTAMICIN [Suspect]
     Active Substance: GENTAMICIN
     Indication: Staphylococcal sepsis
     Dosage: 450 MILLIGRAM TOTAL (1X )
     Route: 065

REACTIONS (7)
  - Drug interaction [Unknown]
  - Drug level decreased [Unknown]
  - Drug ineffective [Unknown]
  - Hepatitis acute [Unknown]
  - Hepatic function abnormal [Unknown]
  - Drug level below therapeutic [Unknown]
  - Product use in unapproved indication [Unknown]
